FAERS Safety Report 21022995 (Version 1)
Quarter: 2022Q2

REPORT INFORMATION
  Report Type: Spontaneous
  Country: US (occurrence: None)
  Receive Date: 20220629
  Receipt Date: 20220629
  Transmission Date: 20220720
  Serious: Yes (Hospitalization)
  Sender: FDA-Public Use
  Company Number: None

PATIENT
  Age: 75 Year
  Sex: Female
  Weight: 61 kg

DRUGS (2)
  1. CARBOPLATIN [Suspect]
     Active Substance: CARBOPLATIN
     Dates: end: 20220526
  2. TAXOL [Suspect]
     Active Substance: PACLITAXEL
     Dates: end: 20220609

REACTIONS (5)
  - Pain in extremity [None]
  - Condition aggravated [None]
  - Neuropathy peripheral [None]
  - Deep vein thrombosis [None]
  - Fractured sacrum [None]

NARRATIVE: CASE EVENT DATE: 20220624
